FAERS Safety Report 4749694-1 (Version None)
Quarter: 2005Q3

REPORT INFORMATION
  Report Type: 
  Country: None (occurrence: None)
  Receive Date: 20050818
  Receipt Date: 20050818
  Transmission Date: 20060218
  Serious: Yes (Hospitalization)
  Sender: FDA-Public Use
  Company Number: None

PATIENT
  Age: 67 Year
  Sex: Male
  Weight: 95.2554 kg

DRUGS (2)
  1. FLOMAX [Suspect]
     Indication: DYSURIA
     Dosage: 2 CAPS DAILY WITH MEAL
  2. FLOMAX [Suspect]
     Indication: POLLAKIURIA
     Dosage: 2 CAPS DAILY WITH MEAL

REACTIONS (5)
  - ARRHYTHMIA [None]
  - DIZZINESS [None]
  - DYSPNOEA [None]
  - PALPITATIONS [None]
  - TACHYCARDIA [None]
